FAERS Safety Report 8252646-0 (Version None)
Quarter: 2012Q2

REPORT INFORMATION
  Report Type: 
  Country: None (occurrence: None)
  Receive Date: 20120402
  Receipt Date: 20110804
  Transmission Date: 20120825
  Serious: No
  Sender: FDA-Public Use
  Company Number: US-ABBOTT-11P-163-0844491-00

PATIENT
  Age: 59 Year
  Sex: Male
  Weight: 81.72 kg

DRUGS (5)
  1. VYTORIN [Concomitant]
     Indication: BLOOD CHOLESTEROL INCREASED
  2. ANDROGEL [Suspect]
     Indication: BLOOD TESTOSTERONE DECREASED
     Dosage: 4 PUMPS DAILY
     Route: 061
     Dates: start: 20090101, end: 20110201
  3. ANDROGEL [Suspect]
     Dosage: 3 PUMPS DAILY
     Route: 061
     Dates: start: 20110301
  4. BENICAR [Concomitant]
     Indication: HYPERTENSION
  5. CELEBREX [Concomitant]
     Indication: ARTHRITIS

REACTIONS (3)
  - DRUG DOSE OMISSION [None]
  - PROSTATIC SPECIFIC ANTIGEN ABNORMAL [None]
  - BLOOD TESTOSTERONE DECREASED [None]
